FAERS Safety Report 5070519-1 (Version None)
Quarter: 2006Q3

REPORT INFORMATION
  Report Type: 
  Country: None (occurrence: None)
  Receive Date: 20060804
  Receipt Date: 20060503
  Transmission Date: 20061208
  Serious: Yes (Other)
  Sender: FDA-Public Use
  Company Number: US-SP-2006-01038

PATIENT
  Age: 18 Year
  Sex: Male

DRUGS (4)
  1. MENACTRA [Suspect]
     Indication: IMMUNISATION
     Route: 058
     Dates: start: 20060502
  2. MENACTRA [Suspect]
     Route: 058
     Dates: start: 20060502
  3. TUBERSOL [Suspect]
     Indication: IMMUNISATION
     Route: 023
     Dates: start: 20060502
  4. TUBERSOL [Suspect]
     Route: 023
     Dates: start: 20060502

REACTIONS (5)
  - BLOOD GLUCOSE INCREASED [None]
  - HAEMATOCRIT DECREASED [None]
  - INCORRECT ROUTE OF DRUG ADMINISTRATION [None]
  - ROAD TRAFFIC ACCIDENT [None]
  - SYNCOPE VASOVAGAL [None]
